FAERS Safety Report 8070872-0 (Version None)
Quarter: 2012Q1

REPORT INFORMATION
  Report Type: 
  Country: None (occurrence: None)
  Receive Date: 20120125
  Receipt Date: 20120123
  Transmission Date: 20120608
  Serious: Yes (Life-Threatening, Hospitalization, Other)
  Sender: FDA-Public Use
  Company Number: GXKR2012DE000662

PATIENT

DRUGS (3)
  1. RANITIDINE [Suspect]
     Dosage: 1X1 FILM-COATED TABLET AT 150 MG DAILY PER OS
     Route: 048
     Dates: start: 20110930, end: 20111018
  2. METHIMAZOLE [Suspect]
     Indication: BASEDOW'S DISEASE
     Dates: start: 20111008
  3. BELOC-ZOC MITE ASTRA ZENECA [Concomitant]
     Dosage: UNK MG, UNK
     Route: 048
     Dates: start: 20110921

REACTIONS (2)
  - RENAL FAILURE ACUTE [None]
  - TUBULOINTERSTITIAL NEPHRITIS [None]
